FAERS Safety Report 6662883-4 (Version None)
Quarter: 2010Q2

REPORT INFORMATION
  Report Type: 
  Country: None (occurrence: None)
  Receive Date: 20100401
  Receipt Date: 20100319
  Transmission Date: 20101027
  Serious: No
  Sender: FDA-Public Use
  Company Number: US-JNJFOC-20100306440

PATIENT
  Sex: Female
  Weight: 63.5 kg

DRUGS (9)
  1. DURAGESIC-100 [Suspect]
     Indication: NECK PAIN
     Route: 062
  2. DURAGESIC-100 [Suspect]
     Indication: BACK PAIN
     Route: 062
  3. ALBUTEROL [Concomitant]
     Indication: ASTHMA
     Route: 055
  4. ASTHMA INHALER [Concomitant]
     Indication: ASTHMA
     Route: 055
  5. OXYCODONE [Concomitant]
     Indication: BACK PAIN
     Route: 048
  6. TRAMADOL HCL [Concomitant]
     Indication: BREAKTHROUGH PAIN
     Route: 048
  7. TIZANIDINE HCL [Concomitant]
     Indication: MUSCLE RELAXANT THERAPY
     Route: 048
  8. NABUMETONE [Concomitant]
     Indication: MUSCLE RELAXANT THERAPY
     Route: 048
  9. CYMBALTA [Concomitant]
     Indication: ANTIDEPRESSANT THERAPY
     Route: 048

REACTIONS (4)
  - APPLICATION SITE IRRITATION [None]
  - APPLICATION SITE PRURITUS [None]
  - DRUG INEFFECTIVE [None]
  - WRONG TECHNIQUE IN DRUG USAGE PROCESS [None]
